FAERS Safety Report 4779565-6 (Version None)
Quarter: 2005Q3

REPORT INFORMATION
  Report Type: 
  Country: None (occurrence: None)
  Receive Date: 20050927
  Receipt Date: 20050912
  Transmission Date: 20060218
  Serious: Yes (Disabling, Other)
  Sender: FDA-Public Use
  Company Number: 2005AC01439

PATIENT
  Age: 67 Year
  Sex: Female

DRUGS (2)
  1. ROPIVACAINE [Suspect]
     Indication: EPIDURAL ANAESTHESIA
     Route: 008
  2. TRIAMCINOLONE ACETONIDE [Suspect]
     Indication: CHEST WALL PAIN
     Route: 008

REACTIONS (2)
  - PARAPLEGIA [None]
  - SPINAL CORD INFARCTION [None]
